FAERS Safety Report 9528863 (Version 1)
Quarter: 2013Q1

REPORT INFORMATION
  Report Type: Spontaneous
  Country: US (occurrence: None)
  Receive Date: 20130322
  Receipt Date: 20130322
  Transmission Date: 20140127
  Serious: Yes (Hospitalization)
  Sender: FDA-Public Use
  Company Number: PHEH2012US020376

PATIENT
  Age: 31 Year
  Sex: Female
  Weight: 65 kg

DRUGS (6)
  1. NEORAL (CICLOSPORIN) [Suspect]
     Indication: RENAL TRANSPLANT
     Route: 048
  2. IMURAN (AZATHIOPRINE) [Concomitant]
  3. PREDNISONE [Concomitant]
  4. BACTRIM DS (SULFAMETHOXAZOLE, TRIMETHORPIM) [Concomitant]
  5. NITROFURANTOIN [Concomitant]
  6. LABETALOL [Concomitant]

REACTIONS (3)
  - Kidney transplant rejection [None]
  - Blood pressure increased [None]
  - Renal impairment [None]
